FAERS Safety Report 21682373 (Version 1)
Quarter: 2022Q4

REPORT INFORMATION
  Report Type: Spontaneous
  Country: US (occurrence: None)
  Receive Date: 20221203
  Receipt Date: 20221203
  Transmission Date: 20230112
  Serious: Yes (Other)
  Sender: FDA-Public Use
  Company Number: None

PATIENT
  Age: 68 Year
  Sex: Male

DRUGS (2)
  1. LUMASON [Suspect]
     Active Substance: SULFUR HEXAFLUORIDE
     Dates: start: 20221017
  2. LUMASON [Concomitant]
     Active Substance: SULFUR HEXAFLUORIDE
     Dates: start: 20221017

REACTIONS (6)
  - Loss of consciousness [None]
  - Dizziness [None]
  - Syncope [None]
  - Pain in jaw [None]
  - Blood pressure decreased [None]
  - Pulmonary oedema [None]

NARRATIVE: CASE EVENT DATE: 20221017
